FAERS Safety Report 8920962 (Version 4)
Quarter: 2013Q1

REPORT INFORMATION
  Report Type: Report from Study
  Country: US (occurrence: US)
  Receive Date: 20121121
  Receipt Date: 20130311
  Transmission Date: 20140127
  Serious: Yes (Hospitalization)
  Sender: FDA-Public Use
  Company Number: US-PFIZER INC-2012281766

PATIENT
  Age: 86 Year
  Sex: Male
  Weight: 75.5 kg

DRUGS (8)
  1. BLINDED CELECOXIB [Suspect]
     Indication: ADENOCARCINOMA OF COLON
     Dosage: 400 MG, QD STARTING ON DAY 1 OF CYCLE 2 OF FOLFOX, CONTINUED TO 3 YEARS
     Route: 048
     Dates: start: 20120924
  2. BLINDED NO SUBJECT DRUG [Suspect]
     Indication: ADENOCARCINOMA OF COLON
     Dosage: 400 MG, QD STARTING ON DAY 1 OF CYCLE 2 OF FOLFOX, CONTINUED TO 3 YEARS
     Route: 048
     Dates: start: 20120924
  3. BLINDED PLACEBO [Suspect]
     Indication: ADENOCARCINOMA OF COLON
     Dosage: 400 MG, QD STARTING ON DAY 1 OF CYCLE 2 OF FOLFOX, CONTINUED TO 3 YEARS
     Route: 048
     Dates: start: 20120924
  4. FLUOROURACIL [Suspect]
     Indication: COLON CANCER
     Dosage: 400 MG/M2, ON DAY 1
     Route: 041
     Dates: start: 20120924
  5. FLUOROURACIL [Suspect]
     Dosage: 2400 MG/M2, OVER 46-48 HOURS ON DAY 1
     Route: 042
     Dates: start: 20120924
  6. ELOXATIN [Suspect]
     Indication: COLON CANCER
     Dosage: 85 MG/M2, OVER 2 HOURS ON DAY 1
     Route: 042
     Dates: start: 20120924
  7. LEUCOVORIN CALCIUM [Suspect]
     Indication: COLON CANCER
     Dosage: 400 MG/M2, OVER 2 HOURS ON DAY 1
     Route: 042
     Dates: start: 20120924
  8. NEULASTA [Concomitant]

REACTIONS (1)
  - Wound infection [Recovering/Resolving]
